FAERS Safety Report 17139843 (Version 1)
Quarter: 2019Q4

REPORT INFORMATION
  Report Type: Spontaneous
  Country: GR (occurrence: GR)
  Receive Date: 20191211
  Receipt Date: 20191211
  Transmission Date: 20200122
  Serious: Yes (Hospitalization)
  Sender: FDA-Public Use
  Company Number: GR-ACCORD-164169

PATIENT
  Age: 82 Year
  Sex: Male

DRUGS (2)
  1. TIGECYCLINE. [Suspect]
     Active Substance: TIGECYCLINE
     Indication: ANTIBIOTIC THERAPY
     Dosage: HIGH DOSAGE, FOLLOWED BY 100 MG
     Route: 042
  2. MEROPENEM. [Concomitant]
     Active Substance: MEROPENEM
     Indication: ANTIBIOTIC THERAPY
     Dosage: EVERY EIGHT HOURS

REACTIONS (3)
  - Nausea [Recovered/Resolved]
  - Abdominal pain [Recovered/Resolved]
  - Hypofibrinogenaemia [Recovered/Resolved]
